FAERS Safety Report 13574767 (Version 1)
Quarter: 2017Q2

REPORT INFORMATION
  Report Type: Spontaneous
  Country: DK (occurrence: DK)
  Receive Date: 20170523
  Receipt Date: 20170523
  Transmission Date: 20170830
  Serious: Yes (Other)
  Sender: FDA-Public Use
  Company Number: DK-PFIZER INC-2017217961

PATIENT
  Age: 58 Year
  Sex: Female

DRUGS (5)
  1. PREDNISOLON DAK [Suspect]
     Active Substance: PREDNISOLONE
     Indication: METASTASES TO CENTRAL NERVOUS SYSTEM
     Dosage: DOSE REDUCED TO 12.5 MG 11FEB2014.
     Route: 048
     Dates: start: 20140131, end: 20140217
  2. MEDROL [Suspect]
     Active Substance: METHYLPREDNISOLONE
     Indication: METASTASES TO CENTRAL NERVOUS SYSTEM
     Dosage: DOSE INCREASED TO 16 MG 12 SEP2013. WITHDRAWAL BEGAN 02DEC2013
     Route: 048
     Dates: start: 20130815, end: 20131210
  3. MEDROL [Suspect]
     Active Substance: METHYLPREDNISOLONE
     Dosage: DOSE INCREASED FOR A PERIOD OF TIME
     Route: 048
     Dates: start: 20140217, end: 20150814
  4. PREDNISOLON DAK [Suspect]
     Active Substance: PREDNISOLONE
     Dosage: VARYING DOSE
     Route: 048
     Dates: start: 20150814, end: 201611
  5. CALCIUM [Concomitant]
     Active Substance: CALCIUM
     Indication: PROPHYLAXIS
     Route: 048
     Dates: start: 20130815

REACTIONS (5)
  - Osteonecrosis [Not Recovered/Not Resolved]
  - Bone fissure [Not Recovered/Not Resolved]
  - Back pain [Not Recovered/Not Resolved]
  - Bone erosion [Not Recovered/Not Resolved]
  - Arthralgia [Not Recovered/Not Resolved]

NARRATIVE: CASE EVENT DATE: 20161005
